FAERS Safety Report 8372863-9 (Version None)
Quarter: 2012Q2

REPORT INFORMATION
  Report Type: 
  Country: None (occurrence: None)
  Receive Date: 20120521
  Receipt Date: 20120515
  Transmission Date: 20120825
  Serious: Yes (Other)
  Sender: FDA-Public Use
  Company Number: US-PFIZER INC-2012118318

PATIENT
  Sex: Female

DRUGS (3)
  1. NEURONTIN [Suspect]
     Indication: VASCULITIS
     Dosage: 400 MG, 2X/DAY
     Route: 048
  2. NORVASC [Suspect]
     Indication: PSORIASIS
  3. NORVASC [Suspect]
     Indication: DYSPNOEA
     Dosage: 10 MG, 1X/DAY
     Route: 048

REACTIONS (3)
  - HYPERSENSITIVITY [None]
  - HYPERTHYROIDISM [None]
  - DRUG HYPERSENSITIVITY [None]
